FAERS Safety Report 14828963 (Version 2)
Quarter: 2018Q2

REPORT INFORMATION
  Report Type: Spontaneous
  Country: US (occurrence: US)
  Receive Date: 20180430
  Receipt Date: 20180615
  Transmission Date: 20180711
  Serious: Yes (Hospitalization, Disabling, Other)
  Sender: FDA-Public Use
  Company Number: US-JNJFOC-20180436271

PATIENT
  Age: 50 Year
  Sex: Male

DRUGS (1)
  1. INVOKAMET [Suspect]
     Active Substance: CANAGLIFLOZIN\METFORMIN HYDROCHLORIDE
     Indication: TYPE 2 DIABETES MELLITUS
     Dosage: 150-1000 MG
     Route: 048
     Dates: start: 20150727

REACTIONS (7)
  - Leg amputation [Unknown]
  - Diabetic ulcer [Unknown]
  - Cellulitis [Unknown]
  - Osteomyelitis [Unknown]
  - Toe amputation [Recovering/Resolving]
  - Gangrene [Unknown]
  - Foot amputation [Unknown]

NARRATIVE: CASE EVENT DATE: 20151105
